FAERS Safety Report 5867663-5 (Version None)
Quarter: 2008Q3

REPORT INFORMATION
  Report Type: 
  Country: None (occurrence: None)
  Receive Date: 20080902
  Receipt Date: 20071213
  Transmission Date: 20090109
  Serious: No
  Sender: FDA-Public Use
  Company Number: US-ABBOTT-07P-163-0430127-00

PATIENT
  Sex: Male
  Weight: 74.91 kg

DRUGS (5)
  1. DEPAKOTE ER [Suspect]
     Indication: BIPOLAR DISORDER
     Route: 048
     Dates: start: 20071001, end: 20071213
  2. DEPAKOTE ER [Suspect]
     Route: 048
     Dates: start: 20071213
  3. SERTRALINE [Concomitant]
     Indication: BIPOLAR DISORDER
  4. TRAZODONE HCL [Concomitant]
     Indication: BIPOLAR DISORDER
  5. RISPERDAL [Concomitant]
     Indication: BIPOLAR DISORDER

REACTIONS (1)
  - MUSCULOSKELETAL STIFFNESS [None]
